FAERS Safety Report 4779789-8 (Version None)
Quarter: 2005Q3

REPORT INFORMATION
  Report Type: 
  Country: None (occurrence: None)
  Receive Date: 20050914
  Receipt Date: 20050107
  Transmission Date: 20060218
  Serious: Yes (Death, Hospitalization, Disabling, Other)
  Sender: FDA-Public Use
  Company Number: 163-20785-03100064

PATIENT
  Age: 57 Year
  Sex: Male

DRUGS (14)
  1. THALOMID [Suspect]
     Indication: METASTASES TO BONE
     Dosage: 200 MG, DAILY, ORAL
     Route: 048
     Dates: start: 20030807, end: 20040426
  2. THALOMID [Suspect]
     Indication: METASTASES TO RETROPERITONEUM
     Dosage: 200 MG, DAILY, ORAL
     Route: 048
     Dates: start: 20030807, end: 20040426
  3. THALOMID [Suspect]
     Indication: METASTASES TO SPINE
     Dosage: 200 MG, DAILY, ORAL
     Route: 048
     Dates: start: 20030807, end: 20040426
  4. THALOMID [Suspect]
     Indication: RENAL CELL CARCINOMA STAGE UNSPECIFIED
     Dosage: 200 MG, DAILY, ORAL
     Route: 048
     Dates: start: 20030807, end: 20040426
  5. THALOMID [Suspect]
     Indication: METASTASES TO BONE
     Dosage: 200 MG, DAILY, ORAL
     Route: 048
     Dates: start: 20031001, end: 20040427
  6. THALOMID [Suspect]
     Indication: METASTASES TO RETROPERITONEUM
     Dosage: 200 MG, DAILY, ORAL
     Route: 048
     Dates: start: 20031001, end: 20040427
  7. THALOMID [Suspect]
     Indication: METASTASES TO SPINE
     Dosage: 200 MG, DAILY, ORAL
     Route: 048
     Dates: start: 20031001, end: 20040427
  8. THALOMID [Suspect]
     Indication: RENAL CELL CARCINOMA STAGE UNSPECIFIED
     Dosage: 200 MG, DAILY, ORAL
     Route: 048
     Dates: start: 20031001, end: 20040427
  9. ZOMETA [Concomitant]
  10. VENOFER [Concomitant]
  11. COUMADIN [Concomitant]
  12. ACETYLSALICYLIC ACID SRT [Concomitant]
  13. LASIX [Concomitant]
  14. ZAROXOLYN [Concomitant]

REACTIONS (5)
  - DEATH [None]
  - INTRACARDIAC THROMBUS [None]
  - NEUROPATHY PERIPHERAL [None]
  - OEDEMA [None]
  - RENAL FAILURE [None]
